FAERS Safety Report 10302875 (Version 2)
Quarter: 2014Q4

REPORT INFORMATION
  Report Type: Spontaneous
  Country: US (occurrence: US)
  Receive Date: 20140714
  Receipt Date: 20141205
  Transmission Date: 20150528
  Serious: Yes (Other)
  Sender: FDA-Public Use
  Company Number: US-BRISTOL-MYERS SQUIBB COMPANY-20801809

PATIENT
  Age: 77 Year
  Sex: Male
  Weight: 84 kg

DRUGS (14)
  1. ACYCLOVIR. [Concomitant]
     Active Substance: ACYCLOVIR
     Route: 048
     Dates: start: 20131212
  2. FINASTERIDE. [Concomitant]
     Active Substance: FINASTERIDE
     Route: 048
  3. PREDNISONE. [Suspect]
     Active Substance: PREDNISONE
     Indication: RENAL TRANSPLANT
     Dosage: 16DEC13-24APR14
     Dates: start: 20131012
  4. NYSTATIN. [Concomitant]
     Active Substance: NYSTATIN
     Route: 048
     Dates: start: 20131212
  5. AMLODIPINE [Concomitant]
     Active Substance: AMLODIPINE BESYLATE
     Route: 048
     Dates: start: 20131213
  6. TAMSULOSIN [Concomitant]
     Active Substance: TAMSULOSIN
     Route: 048
  7. ALPRAZOLAM. [Concomitant]
     Active Substance: ALPRAZOLAM
     Route: 048
  8. CHOLECALCIFEROL [Concomitant]
     Active Substance: CHOLECALCIFEROL
     Route: 048
     Dates: start: 20140226
  9. METOPROLOL [Concomitant]
     Active Substance: METOPROLOL
     Route: 048
  10. OMEPRAZOLE. [Concomitant]
     Active Substance: OMEPRAZOLE
     Route: 048
  11. MULTIVITAMIN [Concomitant]
     Active Substance: VITAMINS
     Dates: start: 20131212
  12. BACTRIM [Concomitant]
     Active Substance: SULFAMETHOXAZOLE\TRIMETHOPRIM
     Route: 048
     Dates: start: 20131212
  13. NULOJIX [Suspect]
     Active Substance: BELATACEPT
     Indication: RENAL TRANSPLANT
     Dosage: CUMULATIVE DOSE 4062.5 MG?3F74105,JUN2015?3E77131,MAY2016
     Route: 042
     Dates: start: 20131212, end: 20140227
  14. MYFORTIC [Suspect]
     Active Substance: MYCOPHENOLATE SODIUM
     Indication: RENAL TRANSPLANT
     Dates: start: 20131212

REACTIONS (6)
  - Thrombocytopenia [Unknown]
  - Anaemia [Unknown]
  - Tremor [Unknown]
  - Oedema peripheral [Unknown]
  - BK virus infection [Unknown]
  - Kidney transplant rejection [Unknown]

NARRATIVE: CASE EVENT DATE: 20140226
